FAERS Safety Report 4878848-9 (Version None)
Quarter: 2006Q1

REPORT INFORMATION
  Report Type: 
  Country: None (occurrence: None)
  Receive Date: 20060112
  Receipt Date: 20060104
  Transmission Date: 20060701
  Serious: Yes (Disabling)
  Sender: FDA-Public Use
  Company Number: IN-GLAXOSMITHKLINE-B0405850A

PATIENT

DRUGS (1)
  1. CEFTAZIDIME [Suspect]
     Indication: DRUG USE FOR UNKNOWN INDICATION
     Dosage: 1G PER DAY
     Route: 065

REACTIONS (3)
  - CHILLS [None]
  - DYSARTHRIA [None]
  - FACIAL PALSY [None]
